FAERS Safety Report 9856445 (Version 1)
Quarter: 2014Q1

REPORT INFORMATION
  Report Type: Spontaneous
  Country: US (occurrence: US)
  Receive Date: 20140130
  Receipt Date: 20140130
  Transmission Date: 20141002
  Serious: No
  Sender: FDA-Public Use
  Company Number: US-009507513-1401USA008355

PATIENT
  Age: 55 Year
  Sex: Male

DRUGS (1)
  1. COPPERTONE LOTION SPF 8 [Suspect]
     Indication: DRY SKIN
     Dosage: UNK, QD
     Route: 061

REACTIONS (2)
  - Unevaluable event [Unknown]
  - Off label use [Unknown]
